FAERS Safety Report 4286771-6 (Version None)
Quarter: 2004Q1

REPORT INFORMATION
  Report Type: 
  Country: None (occurrence: None)
  Receive Date: 20040204
  Receipt Date: 20040126
  Transmission Date: 20041129
  Serious: Yes (Death)
  Sender: FDA-Public Use
  Company Number: 2004IC000018

PATIENT
  Age: 77 Year
  Sex: Male

DRUGS (3)
  1. FLUOROURACIL [Suspect]
     Indication: RECTAL CANCER
     Dosage: 500 MG; UNKNOWN; INTRAVENOUS
     Route: 042
     Dates: start: 20031122, end: 20031203
  2. LEUCOVORIN CALCIUM [Suspect]
     Indication: RECTAL CANCER
     Dosage: 15 MG; UNKNOWN; INTRAVENOUS
     Route: 042
     Dates: start: 20031122, end: 20031203
  3. NASEA [Concomitant]

REACTIONS (13)
  - CARDIAC FAILURE [None]
  - DEHYDRATION [None]
  - DIARRHOEA [None]
  - HEPATIC FAILURE [None]
  - HYPOXIA [None]
  - LEUKOPENIA [None]
  - MULTI-ORGAN FAILURE [None]
  - ORAL MUCOSAL DISORDER [None]
  - PNEUMONIA [None]
  - PULMONARY OEDEMA [None]
  - RENAL FAILURE [None]
  - RESPIRATORY DISTRESS [None]
  - THROMBOCYTOPENIA [None]
